FAERS Safety Report 13431128 (Version 1)
Quarter: 2017Q2

REPORT INFORMATION
  Report Type: Spontaneous
  Country: US (occurrence: US)
  Receive Date: 20170411
  Receipt Date: 20170411
  Transmission Date: 20170830
  Serious: Yes (Hospitalization)
  Sender: FDA-Public Use
  Company Number: None

PATIENT
  Age: 64 Year
  Sex: Male

DRUGS (1)
  1. MORPHINE [Suspect]
     Active Substance: MORPHINE
     Dates: start: 20110626, end: 20110626

REACTIONS (3)
  - Pruritus [None]
  - Rash macular [None]
  - Urticaria [None]

NARRATIVE: CASE EVENT DATE: 20110626
